FAERS Safety Report 17324725 (Version 1)
Quarter: 2020Q1

REPORT INFORMATION
  Report Type: Spontaneous
  Country: US (occurrence: US)
  Receive Date: 20200124
  Receipt Date: 20200124
  Transmission Date: 20200409
  Serious: Yes (Disabling)
  Sender: FDA-Public Use
  Company Number: None

PATIENT
  Age: 64 Year
  Sex: Female
  Weight: 76.95 kg

DRUGS (10)
  1. CLOBETASOL [Concomitant]
     Active Substance: CLOBETASOL
  2. ULTRA WOMAN  MULTI-VITAMIN [Concomitant]
  3. CALCIUM VITAMIN D [Concomitant]
     Active Substance: CALCIUM\VITAMIN D
  4. ALPHA LIPOIC ACID [Concomitant]
     Active Substance: .ALPHA.-LIPOIC ACID
  5. SYNTHROID [Concomitant]
     Active Substance: LEVOTHYROXINE SODIUM
  6. OMEPRAZOLE DR 40 MG [Suspect]
     Active Substance: OMEPRAZOLE
     Indication: DIAPHRAGMATIC SPASM
     Dosage: ?          QUANTITY:1 CAPSULE(S);?
     Route: 048
     Dates: start: 20191205, end: 20200104
  7. ESTRACE [Concomitant]
     Active Substance: ESTRADIOL
  8. OMEGA-3 FATTY ACIDS FISH OIL [Concomitant]
     Active Substance: FISH OIL\OMEGA-3 FATTY ACIDS
  9. OMEPRAZOLE DR 40 MG [Suspect]
     Active Substance: OMEPRAZOLE
     Indication: GASTROOESOPHAGEAL REFLUX DISEASE
     Dosage: ?          QUANTITY:1 CAPSULE(S);?
     Route: 048
     Dates: start: 20191205, end: 20200104
  10. PSYLLIUM HUSKS [Concomitant]
     Active Substance: PSYLLIUM HUSK

REACTIONS (2)
  - Taste disorder [None]
  - Dysgeusia [None]

NARRATIVE: CASE EVENT DATE: 20200118
